FAERS Safety Report 11161121 (Version 1)
Quarter: 2015Q2

REPORT INFORMATION
  Report Type: Spontaneous
  Country: US (occurrence: US)
  Receive Date: 20150604
  Receipt Date: 20150604
  Transmission Date: 20150821
  Serious: No
  Sender: FDA-Public Use
  Company Number: US-SA-2014SA080352

PATIENT
  Age: 57 Year
  Sex: Female

DRUGS (2)
  1. SOLOSTAR [Concomitant]
     Active Substance: DEVICE
  2. LANTUS SOLOSTAR [Suspect]
     Active Substance: INSULIN GLARGINE
     Indication: TYPE 2 DIABETES MELLITUS
     Dosage: RECEIVED 10 U IN THE MORNING AND 20 U AT NIGHT
     Route: 065

REACTIONS (3)
  - Blood glucose increased [Unknown]
  - Off label use [Unknown]
  - Wrong technique in drug usage process [Unknown]
